FAERS Safety Report 25247763 (Version 1)
Quarter: 2025Q2

REPORT INFORMATION
  Report Type: Report from Study
  Country: US (occurrence: US)
  Receive Date: 20250428
  Receipt Date: 20250428
  Transmission Date: 20250717
  Serious: Yes (Other)
  Sender: ABBVIE
  Company Number: US-ABBVIE-6221118

PATIENT
  Age: 62 Year
  Sex: Female

DRUGS (1)
  1. SKYRIZI [Suspect]
     Active Substance: RISANKIZUMAB-RZAA
     Indication: Crohn^s disease
     Route: 042
     Dates: start: 20250307

REACTIONS (10)
  - Fractured sacrum [Not Recovered/Not Resolved]
  - Osteoporosis [Unknown]
  - Unevaluable event [Unknown]
  - Nasopharyngitis [Recovering/Resolving]
  - Muscle disorder [Recovering/Resolving]
  - Musculoskeletal pain [Unknown]
  - Arthralgia [Unknown]
  - Anal incontinence [Recovered/Resolved]
  - Urinary incontinence [Recovered/Resolved]
  - Abdominal pain upper [Unknown]

NARRATIVE: CASE EVENT DATE: 20250101
